FAERS Safety Report 5824797-9 (Version None)
Quarter: 2008Q3

REPORT INFORMATION
  Report Type: 
  Country: None (occurrence: None)
  Receive Date: 20080728
  Receipt Date: 20080718
  Transmission Date: 20090109
  Serious: Yes (Hospitalization, Other)
  Sender: FDA-Public Use
  Company Number: JP-ABBOTT-08P-086-0464077-00

PATIENT
  Sex: Male

DRUGS (6)
  1. CLARITHROMYCIN [Suspect]
     Indication: HELICOBACTER INFECTION
     Route: 048
     Dates: start: 20080219, end: 20080225
  2. TAKEPRON OD TABLETS [Suspect]
     Indication: DUODENAL ULCER
     Route: 048
     Dates: start: 20080129
  3. TAKEPRON OD TABLETS [Suspect]
     Indication: HELICOBACTER INFECTION
  4. GLIBENCLAMIDE [Suspect]
     Indication: DIABETES MELLITUS
     Route: 048
     Dates: end: 20080222
  5. GLIBENCLAMIDE [Suspect]
     Route: 048
     Dates: end: 20080308
  6. AMOXICILLIN TRIHYDRATE [Concomitant]
     Indication: HELICOBACTER INFECTION
     Route: 048
     Dates: start: 20080219, end: 20080225

REACTIONS (8)
  - DEPRESSED LEVEL OF CONSCIOUSNESS [None]
  - DRUG INTERACTION [None]
  - HEART RATE DECREASED [None]
  - HYPERHIDROSIS [None]
  - HYPERVENTILATION [None]
  - HYPOGLYCAEMIA [None]
  - UNRESPONSIVE TO STIMULI [None]
  - WHEEZING [None]
